FAERS Safety Report 5165926-2 (Version None)
Quarter: 2006Q4

REPORT INFORMATION
  Report Type: 
  Country: None (occurrence: None)
  Receive Date: 20061206
  Receipt Date: 20060825
  Transmission Date: 20070319
  Serious: Yes (Hospitalization)
  Sender: FDA-Public Use
  Company Number: JP-BOEHRINGER INGELHEIM GMBH, GERMANY-2006-DE-04481GD

PATIENT
  Age: 74 Year
  Sex: Male

DRUGS (1)
  1. MEXILETINE HYDROCHLORIDE [Suspect]
     Indication: ARRHYTHMIA

REACTIONS (13)
  - CYTOMEGALOVIRUS COLITIS [None]
  - CYTOMEGALOVIRUS VIRAEMIA [None]
  - DRUG HYPERSENSITIVITY [None]
  - EOSINOPHILIA [None]
  - EPSTEIN-BARR VIRAEMIA [None]
  - GASTROINTESTINAL HAEMORRHAGE [None]
  - HUMAN HERPES VIRUS 6 SEROLOGY POSITIVE [None]
  - LEUKOCYTOSIS [None]
  - LIVER DISORDER [None]
  - LYMPHOCYTOSIS [None]
  - PYREXIA [None]
  - RASH ERYTHEMATOUS [None]
  - SKIN ULCER [None]
